FAERS Safety Report 8922896 (Version 1)
Quarter: 2012Q4

REPORT INFORMATION
  Report Type: Spontaneous
  Country: FR (occurrence: None)
  Receive Date: 20121109
  Receipt Date: 20121109
  Transmission Date: 20130627
  Serious: Yes (Hospitalization)
  Sender: FDA-Public Use
  Company Number: 2012S1000281

PATIENT
  Age: 79 Year
  Sex: Male
  Weight: 70 kg

DRUGS (3)
  1. CUBICIN [Suspect]
     Indication: DEVICE RELATED INFECTION
     Route: 042
     Dates: start: 20111117, end: 20120217
  2. RIFAMPICIN [Concomitant]
  3. FOSFOMYCIN [Concomitant]

REACTIONS (3)
  - Eosinophilic pneumonia [None]
  - Asthma [None]
  - Off label use [None]
